FAERS Safety Report 15690753 (Version 3)
Quarter: 2019Q1

REPORT INFORMATION
  Report Type: Spontaneous
  Country: US (occurrence: US)
  Receive Date: 20181205
  Receipt Date: 20190213
  Transmission Date: 20190417
  Serious: No
  Sender: FDA-Public Use
  Company Number: US-PFIZER INC-2018500066

PATIENT
  Age: 59 Year
  Sex: Female

DRUGS (1)
  1. SOMAVERT [Suspect]
     Active Substance: PEGVISOMANT
     Dosage: 30 MG, DAILY

REACTIONS (18)
  - Asthenia [Unknown]
  - Temperature intolerance [Unknown]
  - Glycosylated haemoglobin increased [Unknown]
  - Hair texture abnormal [Unknown]
  - Headache [Unknown]
  - Blood cholesterol increased [Unknown]
  - Dysphagia [Unknown]
  - Feeling hot [Unknown]
  - Dry skin [Unknown]
  - Sleep disorder [Unknown]
  - Blood glucose increased [Unknown]
  - Peripheral swelling [Unknown]
  - Dizziness [Unknown]
  - Fatigue [Unknown]
  - Blood chloride increased [Unknown]
  - Protein total decreased [Unknown]
  - Vision blurred [Unknown]
  - Dizziness postural [Unknown]

NARRATIVE: CASE EVENT DATE: 20180424
